FAERS Safety Report 23899397 (Version 1)
Quarter: 2024Q2

REPORT INFORMATION
  Report Type: Spontaneous
  Country: US (occurrence: None)
  Receive Date: 20240526
  Receipt Date: 20240526
  Transmission Date: 20240716
  Serious: Yes (Other)
  Sender: FDA-Public Use
  Company Number: US-ROCHE-3355764

PATIENT
  Sex: Female
  Weight: 20.43 kg

DRUGS (3)
  1. ACTEMRA [Suspect]
     Active Substance: TOCILIZUMAB
     Indication: Still^s disease
     Route: 058
  2. AUGMENTIN [Concomitant]
     Active Substance: AMOXICILLIN\CLAVULANATE POTASSIUM
  3. OMNICEF [Concomitant]
     Active Substance: CEFDINIR

REACTIONS (10)
  - Temperature intolerance [Unknown]
  - Sinusitis [Unknown]
  - Pneumonia [Unknown]
  - Drug hypersensitivity [Not Recovered/Not Resolved]
  - Influenza [Unknown]
  - Serum sickness [Unknown]
  - Vomiting [Unknown]
  - Hyperhidrosis [Unknown]
  - Pyrexia [Not Recovered/Not Resolved]
  - Cheilitis [Unknown]
